FAERS Safety Report 8000481-0 (Version None)
Quarter: 2011Q4

REPORT INFORMATION
  Report Type: 
  Country: None (occurrence: None)
  Receive Date: 20111222
  Receipt Date: 20111213
  Transmission Date: 20120403
  Serious: Yes (Other)
  Sender: FDA-Public Use
  Company Number: US-BAYER-2011-120222

PATIENT
  Sex: Female

DRUGS (2)
  1. DROSPIRENONE AND ETHINYL ESTRADIOL [Suspect]
     Dosage: UNK
     Dates: start: 20080801
  2. YAZ [Suspect]
     Dosage: UNK
     Dates: start: 20080801

REACTIONS (3)
  - PAIN [None]
  - INJURY [None]
  - CHOLECYSTITIS [None]
